FAERS Safety Report 24028808 (Version 1)
Quarter: 2024Q2

REPORT INFORMATION
  Report Type: Other
  Country: IN (occurrence: IN)
  Receive Date: 20240628
  Receipt Date: 20240628
  Transmission Date: 20240716
  Serious: Yes (Hospitalization, Other)
  Sender: FDA-Public Use
  Company Number: IN-Breckenridge Pharmaceutical, Inc.-2158623

PATIENT
  Age: 69 Year
  Sex: Male

DRUGS (2)
  1. CLOBAZAM [Suspect]
     Active Substance: CLOBAZAM
     Indication: Obsessive-compulsive disorder
     Route: 048
  2. QUETIAPINE [Suspect]
     Active Substance: QUETIAPINE

REACTIONS (1)
  - Osmotic demyelination syndrome [Recovered/Resolved]
